FAERS Safety Report 4437634-4 (Version None)
Quarter: 2004Q3

REPORT INFORMATION
  Report Type: 
  Country: None (occurrence: None)
  Receive Date: 20040827
  Receipt Date: 20040812
  Transmission Date: 20050211
  Serious: Yes (Hospitalization)
  Sender: FDA-Public Use
  Company Number: 04P-167-0270726-00

PATIENT
  Age: 41 Year
  Sex: Female
  Weight: 72 kg

DRUGS (5)
  1. HUMIRA [Suspect]
     Dosage: 40 MG, 1 IN 2 WK, SUBCUTANEOUS
     Route: 058
  2. CYCLOPHOSPHAMIDE [Concomitant]
  3. ARIOXIA [Concomitant]
  4. SALIVIX [Concomitant]
  5. TRAMADOL HCL [Concomitant]

REACTIONS (1)
  - PULMONARY EMBOLISM [None]
